FAERS Safety Report 8562172-7 (Version None)
Quarter: 2012Q3

REPORT INFORMATION
  Report Type: 
  Country: None (occurrence: None)
  Receive Date: 20120802
  Receipt Date: 20120709
  Transmission Date: 20120928
  Serious: No
  Sender: FDA-Public Use
  Company Number: US-AMGEN-USASP2012042344

PATIENT
  Age: 43 Year
  Sex: Female

DRUGS (3)
  1. METHOTREXATE [Concomitant]
     Dosage: 1 MG, UNK
     Dates: start: 20120201
  2. HUMIRA [Concomitant]
     Dosage: UNK
     Dates: start: 20111101
  3. ENBREL [Suspect]
     Indication: RHEUMATOID ARTHRITIS
     Dosage: 50 MG, QWK
     Dates: start: 20110920

REACTIONS (5)
  - INJECTION SITE HAEMATOMA [None]
  - THERAPEUTIC RESPONSE DECREASED [None]
  - INJECTION SITE PRURITUS [None]
  - RHEUMATOID ARTHRITIS [None]
  - INJECTION SITE PAIN [None]
